FAERS Safety Report 21799213 (Version 1)
Quarter: 2022Q4

REPORT INFORMATION
  Report Type: Spontaneous
  Country: US (occurrence: None)
  Receive Date: 20221230
  Receipt Date: 20221230
  Transmission Date: 20230112
  Serious: Yes (Hospitalization)
  Sender: FDA-Public Use
  Company Number: None

PATIENT
  Age: 79 Year
  Sex: Female
  Weight: 53.71 kg

DRUGS (14)
  1. CAPECITABINE [Suspect]
     Active Substance: CAPECITABINE
     Indication: Colon cancer
     Dosage: OTHER QUANTITY : 1000-1500MG;?FREQUENCY : TWICE A DAY;?
     Route: 048
     Dates: start: 202209
  2. CALCIUM CARBONATE-VITAMIN D3 [Concomitant]
  3. COREG [Concomitant]
     Active Substance: CARVEDILOL
  4. GABAPENTIN [Concomitant]
  5. KEPPRA [Concomitant]
     Active Substance: LEVETIRACETAM
  6. LEVITHYROXINE [Concomitant]
  7. LIPITOR [Concomitant]
     Active Substance: ATORVASTATIN CALCIUM
  8. LOSARTAN [Concomitant]
     Active Substance: LOSARTAN
  9. SERTRALINE [Concomitant]
     Active Substance: SERTRALINE HYDROCHLORIDE
  10. HYDROCHLOROTHIAZIDE\TRIAMTERENE [Concomitant]
     Active Substance: HYDROCHLOROTHIAZIDE\TRIAMTERENE
  11. TYLENOL [Concomitant]
     Active Substance: ACETAMINOPHEN
  12. VITAMIN B12 [Concomitant]
     Active Substance: CYANOCOBALAMIN
  13. VITAMIN D3 [Concomitant]
     Active Substance: CHOLECALCIFEROL
  14. XARELTO [Concomitant]
     Active Substance: RIVAROXABAN

REACTIONS (2)
  - Loss of consciousness [None]
  - Therapy interrupted [None]
